FAERS Safety Report 7225485-7 (Version None)
Quarter: 2011Q1

REPORT INFORMATION
  Report Type: 
  Country: None (occurrence: None)
  Receive Date: 20110113
  Receipt Date: 20110107
  Transmission Date: 20110831
  Serious: Yes (Death)
  Sender: FDA-Public Use
  Company Number: US-MERCK-1101USA00877

PATIENT
  Age: 37 Year
  Sex: Female

DRUGS (14)
  1. TOPIRAMATE [Suspect]
     Route: 065
  2. GEMFIBROZIL [Suspect]
     Route: 065
  3. ZOCOR [Suspect]
     Route: 048
  4. METFORMIN [Suspect]
     Route: 065
  5. ANALGESIC (UNSPECIFIED) [Suspect]
     Route: 065
  6. CLONAZEPAM [Suspect]
     Route: 065
  7. BUPROPION HYDROCHLORIDE [Suspect]
     Route: 065
  8. LEVOTHYROXINE SODIUM [Suspect]
     Route: 065
  9. DULOXETINE HYDROCHLORIDE [Suspect]
     Route: 065
  10. PREDNISONE [Suspect]
     Route: 065
  11. RANITIDINE [Suspect]
     Route: 065
  12. OXCARBAZEPINE [Suspect]
     Route: 065
  13. ALCOHOL [Suspect]
     Route: 065
  14. ARIPIPRAZOLE [Suspect]
     Route: 065

REACTIONS (2)
  - COMPLETED SUICIDE [None]
  - OVERDOSE [None]
